FAERS Safety Report 4771788-5 (Version None)
Quarter: 2005Q3

REPORT INFORMATION
  Report Type: 
  Country: None (occurrence: None)
  Receive Date: 20050916
  Receipt Date: 20050907
  Transmission Date: 20060218
  Serious: Yes (Death)
  Sender: FDA-Public Use
  Company Number: US-JNJFOC-20050902613

PATIENT
  Age: 23 Year

DRUGS (3)
  1. ASPIRIN [Suspect]
     Route: 048
  2. FLECAINIDE [Suspect]
     Route: 048
  3. DILTIAZEM [Suspect]
     Route: 048

REACTIONS (1)
  - COMPLETED SUICIDE [None]
